FAERS Safety Report 4289290-6 (Version None)
Quarter: 2004Q1

REPORT INFORMATION
  Report Type: 
  Country: None (occurrence: None)
  Receive Date: 20040209
  Receipt Date: 20040209
  Transmission Date: 20041129
  Serious: No
  Sender: FDA-Public Use
  Company Number: None

PATIENT
  Age: 28 Year
  Sex: Male
  Weight: 81.6475 kg

DRUGS (1)
  1. MAG 10 BIOTEST [Suspect]
     Dosage: 6 PILLS 2 TIMES/D ORAL
     Route: 048
     Dates: start: 20040205, end: 20040205

REACTIONS (5)
  - EYE SWELLING [None]
  - PRURITUS [None]
  - PYREXIA [None]
  - SUNBURN [None]
  - SWELLING FACE [None]
